FAERS Safety Report 10714828 (Version 1)
Quarter: 2015Q1

REPORT INFORMATION
  Report Type: Spontaneous
  Country: US (occurrence: US)
  Receive Date: 20150115
  Receipt Date: 20150115
  Transmission Date: 20150721
  Serious: Yes (Death, Other)
  Sender: FDA-Public Use
  Company Number: US-GLAXOSMITHKLINE-US2015GSK002967

PATIENT
  Age: 28 Year
  Sex: Female

DRUGS (3)
  1. ETHANOL [Suspect]
     Active Substance: ALCOHOL
  2. COCAINE [Suspect]
     Active Substance: COCAINE
  3. BUPROPION [Suspect]
     Active Substance: BUPROPION

REACTIONS (1)
  - Death [Fatal]
